FAERS Safety Report 8431252-9 (Version None)
Quarter: 2012Q2

REPORT INFORMATION
  Report Type: 
  Country: None (occurrence: None)
  Receive Date: 20120613
  Receipt Date: 20120530
  Transmission Date: 20120825
  Serious: Yes (Other)
  Sender: FDA-Public Use
  Company Number: BR-AMGEN-BRASP2012035033

PATIENT
  Age: 46 Year
  Sex: Female
  Weight: 86 kg

DRUGS (6)
  1. HYDROCHLOROTHIAZIDE [Concomitant]
     Indication: HYPERTENSION
     Dosage: 25 MG, 1X/DAY
  2. OMEPRAZOLE [Concomitant]
     Dosage: 20 MG, 1X/DAY
  3. DUOVENT [Concomitant]
     Indication: BRONCHITIS
     Dosage: UNK
  4. ENBREL [Suspect]
     Indication: RHEUMATOID ARTHRITIS
     Dosage: 50 MG, ONCE WEEKLY
     Route: 058
     Dates: start: 20120409
  5. FLUTICASONE PROPIONATE/SALMETEROL [Concomitant]
     Indication: BRONCHITIS
     Dosage: TWO INHALATIONS (1 IN THE MORNING AND ONE AT NIGHT)
  6. ARAVA [Concomitant]
     Dosage: 20 MG, 1X/DAY

REACTIONS (3)
  - HYPERTENSIVE CRISIS [None]
  - OEDEMA PERIPHERAL [None]
  - PAIN [None]
